FAERS Safety Report 9882252 (Version 3)
Quarter: 2014Q1

REPORT INFORMATION
  Report Type: Report from Study
  Country: US (occurrence: US)
  Receive Date: 20140207
  Receipt Date: 20140224
  Transmission Date: 20141002
  Serious: Yes (Death, Hospitalization)
  Sender: FDA-Public Use
  Company Number: US-ACTELION-A-NJ2013-86516

PATIENT
  Age: 73 Year
  Sex: Female

DRUGS (5)
  1. VELETRI [Suspect]
     Indication: PULMONARY ARTERIAL HYPERTENSION
     Dosage: 20 NG/KG, PER MIN
     Route: 042
     Dates: start: 20130617, end: 20140128
  2. LETAIRIS [Concomitant]
  3. COUMADIN [Concomitant]
  4. SILDENAFIL [Concomitant]
  5. TYVASO [Concomitant]

REACTIONS (7)
  - Pulmonary arterial hypertension [Fatal]
  - Disease progression [Fatal]
  - Right ventricular failure [Recovering/Resolving]
  - Fluid retention [Recovering/Resolving]
  - Fluid overload [Recovering/Resolving]
  - Dyspnoea [Unknown]
  - Oedema [Unknown]
